FAERS Safety Report 5824277-0 (Version None)
Quarter: 2008Q3

REPORT INFORMATION
  Report Type: 
  Country: None (occurrence: None)
  Receive Date: 20080722
  Receipt Date: 20080707
  Transmission Date: 20090109
  Serious: No
  Sender: FDA-Public Use
  Company Number: US024039

PATIENT
  Age: 40 Year
  Sex: Female
  Weight: 70.7611 kg

DRUGS (17)
  1. FENTORA [Suspect]
     Indication: BACK PAIN
     Dosage: 600 UG BUCCAL
     Route: 002
     Dates: start: 20060701
  2. FENTORA [Suspect]
     Indication: RHEUMATOID ARTHRITIS
     Dosage: 600 UG BUCCAL
     Route: 002
     Dates: start: 20060701
  3. FENTORA [Suspect]
     Indication: BACK PAIN
     Dosage: 800 UG BUCCAL
     Route: 002
  4. FENTORA [Suspect]
     Indication: RHEUMATOID ARTHRITIS
     Dosage: 800 UG BUCCAL
     Route: 002
  5. FENTORA [Suspect]
     Indication: BACK PAIN
     Dosage: 1200 UG BID BUCCAL
     Route: 002
  6. FENTORA [Suspect]
     Indication: RHEUMATOID ARTHRITIS
     Dosage: 1200 UG BID BUCCAL
     Route: 002
  7. PLAQUENIL [Concomitant]
  8. FENTANYL-100 [Concomitant]
  9. INVEGA [Concomitant]
  10. BONIVA [Concomitant]
  11. METHADONE HCL [Concomitant]
  12. METFORMIN HCL [Concomitant]
  13. DIGOXIN [Concomitant]
  14. KEPPRA [Concomitant]
  15. TRAZODONE HCL [Concomitant]
  16. BENZTROPINE [Concomitant]
  17. STUDY DRUG ZEGERID AND PRISTIQ [Concomitant]

REACTIONS (10)
  - DRUG EFFECT DECREASED [None]
  - DRUG PRESCRIBING ERROR [None]
  - GINGIVAL PAIN [None]
  - GLOSSODYNIA [None]
  - HYPOAESTHESIA ORAL [None]
  - INCORRECT DOSE ADMINISTERED [None]
  - ORAL ADMINISTRATION COMPLICATION [None]
  - PARAESTHESIA ORAL [None]
  - PHARMACEUTICAL PRODUCT COMPLAINT [None]
  - TONGUE DISCOLOURATION [None]
